FAERS Safety Report 25305250 (Version 1)
Quarter: 2025Q2

REPORT INFORMATION
  Report Type: Spontaneous
  Country: US (occurrence: None)
  Receive Date: 20250512
  Receipt Date: 20250512
  Transmission Date: 20250716
  Serious: Yes (Death)
  Sender: FDA-CTU
  Company Number: None

PATIENT
  Age: 79 Year
  Sex: Male

DRUGS (4)
  1. TOBRAMYCIN [Suspect]
     Active Substance: TOBRAMYCIN
     Indication: Chronic obstructive pulmonary disease
     Dosage: 300/5MG/ML RES[ORATPRU (INHALATION)? ?
     Route: 055
     Dates: start: 20191108, end: 20250425
  2. CHERRY EXTRACT [Concomitant]
     Active Substance: CHERRY EXTRACT
  3. TADALAFIL [Concomitant]
     Active Substance: TADALAFIL
  4. ACETAMINOPHEN [Concomitant]
     Active Substance: ACETAMINOPHEN

REACTIONS (1)
  - Death [None]

NARRATIVE: CASE EVENT DATE: 20250425
